FAERS Safety Report 7377325-3 (Version None)
Quarter: 2011Q1

REPORT INFORMATION
  Report Type: 
  Country: None (occurrence: None)
  Receive Date: 20110316
  Receipt Date: 20110308
  Transmission Date: 20110831
  Serious: Yes (Other)
  Sender: FDA-Public Use
  Company Number: 2011SP009941

PATIENT
  Age: 9 Year
  Sex: Female

DRUGS (12)
  1. DEXAMETHASONE [Concomitant]
  2. POSACONAZOLE [Suspect]
     Indication: ANTIFUNGAL PROPHYLAXIS
     Dosage: 50 MG; TID; PO
     Route: 048
     Dates: start: 20070610, end: 20070701
  3. CAPOFUNGIN [Concomitant]
  4. PREDNISONE [Concomitant]
  5. ASPARAGINASE [Concomitant]
  6. AMPHOTERICIN B [Concomitant]
  7. VINCRISTINE [Concomitant]
  8. VINCRISTINE [Suspect]
     Indication: ACUTE LYMPHOCYTIC LEUKAEMIA
     Dosage: (1.8 MG; ONCE; IV) (1.8 MG; ONCE. IV)
     Route: 042
     Dates: start: 20070615, end: 20070615
  9. VINCRISTINE [Suspect]
     Indication: ACUTE LYMPHOCYTIC LEUKAEMIA
     Dosage: (1.8 MG; ONCE; IV) (1.8 MG; ONCE. IV)
     Route: 042
     Dates: start: 20070620, end: 20070620
  10. CYTARABINE [Concomitant]
  11. METHOTREXATE [Concomitant]
  12. VORICONAZOLE [Concomitant]

REACTIONS (13)
  - HYPOPHOSPHATAEMIA [None]
  - DRUG INTERACTION [None]
  - NEUROPATHY PERIPHERAL [None]
  - HYPOKALAEMIA [None]
  - NEUTROPENIA [None]
  - CONSTIPATION [None]
  - INAPPROPRIATE ANTIDIURETIC HORMONE SECRETION [None]
  - ENCEPHALOPATHY [None]
  - NEUROTOXICITY [None]
  - CONVULSION [None]
  - HYPONATRAEMIA [None]
  - FUSARIUM INFECTION [None]
  - ABDOMINAL PAIN [None]
